FAERS Safety Report 8246265-X (Version None)
Quarter: 2012Q1

REPORT INFORMATION
  Report Type: 
  Country: None (occurrence: None)
  Receive Date: 20120330
  Receipt Date: 20120323
  Transmission Date: 20120608
  Serious: Yes (Death, Hospitalization)
  Sender: FDA-Public Use
  Company Number: US-CELGENEUS-163-C5013-10051042

PATIENT
  Sex: Male
  Weight: 91.708 kg

DRUGS (24)
  1. OXYCODONE HCL [Concomitant]
     Indication: PAIN
     Dosage: 30 MILLIGRAM
     Route: 048
     Dates: start: 20100506, end: 20100512
  2. GLIPIZIDE [Concomitant]
     Dosage: 5 MILLIGRAM
     Route: 048
     Dates: start: 20050101
  3. LENALIDOMIDE [Suspect]
     Indication: PROSTATE CANCER
     Dosage: 25 MILLIGRAM
     Route: 048
     Dates: start: 20100208, end: 20100221
  4. PREDNISONE TAB [Suspect]
     Indication: PROSTATE CANCER
     Dosage: 10 MILLIGRAM
     Route: 048
     Dates: start: 20100208, end: 20100228
  5. DOCETAXEL [Suspect]
     Indication: PROSTATE CANCER
     Dosage: 160 MILLIGRAM
     Route: 041
     Dates: start: 20100208, end: 20100208
  6. COPAXONE [Concomitant]
     Dosage: 20 MILLIGRAM
     Route: 058
     Dates: start: 20050101, end: 20100511
  7. PROTONIX [Concomitant]
     Indication: NAUSEA
     Route: 041
  8. ATIVAN [Concomitant]
     Indication: ANXIETY
     Dosage: 1 MILLIGRAM
     Route: 041
     Dates: start: 20100507, end: 20100512
  9. GLYBURIDE [Concomitant]
     Dosage: 5 MILLIGRAM
     Route: 048
  10. BENADRYL [Concomitant]
     Dosage: 125 MILLIGRAM
     Route: 041
  11. LENALIDOMIDE [Suspect]
     Dosage: 25 MILLIGRAM
     Route: 048
     Dates: start: 20100503, end: 20100506
  12. DOCETAXEL [Suspect]
     Dosage: 160 MILLIGRAM
     Route: 041
     Dates: start: 20100503, end: 20100506
  13. FLAGYL [Concomitant]
     Dosage: 500 MILLIGRAM
     Route: 041
     Dates: start: 20100506, end: 20100512
  14. PROTONIX [Concomitant]
     Indication: PROPHYLAXIS
     Dosage: 40 MILLIGRAM
     Route: 041
     Dates: start: 20100506, end: 20100512
  15. METFORMIN HCL [Concomitant]
     Dosage: 500 MILLIGRAM
     Route: 048
     Dates: start: 20050101
  16. PROMETHAZINE [Concomitant]
     Indication: VOMITING
     Route: 048
  17. LUPRON [Concomitant]
     Route: 041
  18. ATIVAN [Concomitant]
     Dosage: .5 MILLIGRAM
     Route: 048
     Dates: start: 20100507, end: 20100512
  19. INSULIN [Concomitant]
     Route: 065
  20. PROMETHAZINE [Concomitant]
     Indication: NAUSEA
     Dosage: 25 MILLIGRAM
     Route: 048
     Dates: start: 20100506, end: 20100512
  21. GLATIRAMER ACETATE [Concomitant]
     Route: 065
  22. PREDNISONE TAB [Suspect]
     Dosage: 10 MILLIGRAM
     Route: 048
     Dates: start: 20100503, end: 20100506
  23. DILTIAZEM HCL [Concomitant]
     Route: 065
  24. COMBIVENT [Concomitant]
     Indication: EMPHYSEMA
     Dosage: 1 PUFF
     Route: 055
     Dates: start: 20050101

REACTIONS (3)
  - SEPSIS [None]
  - RENAL FAILURE ACUTE [None]
  - MENTAL STATUS CHANGES [None]
